FAERS Safety Report 5006958-4 (Version None)
Quarter: 2006Q2

REPORT INFORMATION
  Report Type: 
  Country: None (occurrence: None)
  Receive Date: 20060517
  Receipt Date: 20060504
  Transmission Date: 20061013
  Serious: Yes (Death, Hospitalization, Other)
  Sender: FDA-Public Use
  Company Number: 200611927GDS

PATIENT
  Age: 55 Year
  Sex: Male

DRUGS (5)
  1. AVELOX [Suspect]
     Indication: BRONCHITIS
     Dosage: ORAL
     Route: 048
  2. ENOXAPARIN SODIUM [Suspect]
     Indication: CARDIAC DISORDER
     Dosage: 150 MG, ONCE,
  3. COVERSYL /BEL/ [Concomitant]
  4. ALDACTAZIDE [Concomitant]
  5. BETA BLOCKER NOS [Concomitant]

REACTIONS (6)
  - CARDIAC DISORDER [None]
  - CEREBRAL HAEMORRHAGE [None]
  - ELECTROCARDIOGRAM QT PROLONGED [None]
  - FALL [None]
  - HEAD INJURY [None]
  - LOSS OF CONSCIOUSNESS [None]
